FAERS Safety Report 10996061 (Version 2)
Quarter: 2015Q2

REPORT INFORMATION
  Report Type: Spontaneous
  Country: US (occurrence: US)
  Receive Date: 20150407
  Receipt Date: 20150525
  Transmission Date: 20150821
  Serious: Yes (Other)
  Sender: FDA-Public Use
  Company Number: US-JNJFOC-20140204286

PATIENT
  Age: 53 Year
  Sex: Female
  Weight: 71 kg

DRUGS (25)
  1. BENADRYL [Concomitant]
     Active Substance: DIPHENHYDRAMINE HYDROCHLORIDE
     Indication: PREMEDICATION
     Route: 065
  2. CIPROFLOXACIN. [Concomitant]
     Active Substance: CIPROFLOXACIN
     Dosage: 20 TABLET FOR 10 DAYS
     Route: 048
     Dates: start: 20140304
  3. BYSTOLIC [Concomitant]
     Active Substance: NEBIVOLOL HYDROCHLORIDE
     Route: 048
     Dates: start: 20121119
  4. POTASSIUM CHLORIDE. [Concomitant]
     Active Substance: POTASSIUM CHLORIDE
     Dosage: 180 TABLETS
     Route: 048
     Dates: start: 20080401
  5. REMICADE [Suspect]
     Active Substance: INFLIXIMAB
     Indication: ARTHRALGIA
     Route: 042
     Dates: start: 20131129
  6. REMICADE [Suspect]
     Active Substance: INFLIXIMAB
     Indication: CROHN^S DISEASE
     Route: 042
     Dates: start: 20131129
  7. BUDESONIDE. [Concomitant]
     Active Substance: BUDESONIDE
     Dosage: 90 CAPSULE EXTENDED RELEASE 24 HOUR.TAKE 3 CAPSULES BY MOUTH EVERY MORNING.
     Route: 048
     Dates: start: 20130923
  8. SUCRALFATE. [Concomitant]
     Active Substance: SUCRALFATE
     Dosage: 120 TABLET FOR 60 DAYS EVERY 12 HOURS. 5 REFILLS
     Route: 048
     Dates: start: 20140124
  9. MAGNESIUM [Concomitant]
     Active Substance: MAGNESIUM
     Route: 048
     Dates: start: 20121119
  10. TRAMADOL [Concomitant]
     Active Substance: TRAMADOL
     Dosage: 120 TABLETS
     Route: 048
     Dates: start: 20110309
  11. REMICADE [Suspect]
     Active Substance: INFLIXIMAB
     Indication: ARTHRALGIA
     Dosage: SECOND INFUSION
     Route: 042
     Dates: start: 20140124, end: 20140124
  12. GABAPENTIN. [Concomitant]
     Active Substance: GABAPENTIN
     Route: 048
     Dates: start: 20131004
  13. LOVASTATIN. [Concomitant]
     Active Substance: LOVASTATIN
     Route: 048
     Dates: start: 20080829
  14. ONDANSETRON HCL [Concomitant]
     Active Substance: ONDANSETRON HYDROCHLORIDE
     Indication: NAUSEA
     Dosage: AS NEEDED
     Route: 048
     Dates: start: 20121204
  15. PANTOPRAZOLE SODIUM [Concomitant]
     Route: 048
     Dates: start: 20081006
  16. REMICADE [Suspect]
     Active Substance: INFLIXIMAB
     Indication: CROHN^S DISEASE
     Dosage: SECOND INFUSION
     Route: 042
     Dates: start: 20140124, end: 20140124
  17. ESTRADIOL/NORETHINDRONE ACETATE [Concomitant]
     Active Substance: ESTRADIOL\NORETHINDRONE ACETATE
     Dosage: 1-0.5 MG
     Route: 048
     Dates: start: 20120918
  18. FERREX [Concomitant]
     Route: 048
     Dates: start: 20121119
  19. HYDROCODONE/ACETAMINOPHEN [Concomitant]
     Active Substance: ACETAMINOPHEN\HYDROCODONE
     Dosage: 7.5-325 MG 1-2 DAILY
     Route: 048
     Dates: start: 20120130
  20. PROAIR HFA [Concomitant]
     Active Substance: ALBUTEROL SULFATE
     Dosage: 2 PUFFS EVERY 4 HOURS AS NEEDED??1*8.5 GM
     Route: 045
     Dates: start: 20120106
  21. DECONGEST [Concomitant]
     Indication: SINUS HEADACHE
     Dosage: 30-500 MG AS NEEDED
     Route: 048
     Dates: start: 20130204
  22. GLIMEPIRIDE. [Concomitant]
     Active Substance: GLIMEPIRIDE
     Route: 048
     Dates: start: 20121029
  23. SUMATRIPTAN SUCCINATE. [Concomitant]
     Active Substance: SUMATRIPTAN SUCCINATE
     Indication: MIGRAINE
     Dosage: 6 TABLET, 2 REFILLS
     Route: 048
     Dates: start: 20131203
  24. THEOPHYLLINE [Concomitant]
     Active Substance: THEOPHYLLINE ANHYDROUS
     Route: 048
     Dates: start: 20081006
  25. METFORMIN HCL [Concomitant]
     Active Substance: METFORMIN HYDROCHLORIDE
     Dosage: 120 TABLETS
     Route: 048
     Dates: start: 20091112

REACTIONS (5)
  - Flushing [Recovered/Resolved]
  - Arthralgia [Recovering/Resolving]
  - Erythema [Recovered/Resolved]
  - Chest discomfort [Recovered/Resolved]
  - Infusion related reaction [Recovering/Resolving]

NARRATIVE: CASE EVENT DATE: 20140124
